FAERS Safety Report 8608194-9 (Version None)
Quarter: 2012Q3

REPORT INFORMATION
  Report Type: 
  Country: None (occurrence: None)
  Receive Date: 20120809
  Receipt Date: 20120809
  Transmission Date: 20120928
  Serious: Yes (Other)
  Sender: FDA-Public Use
  Company Number: None

PATIENT
  Age: 41 Year
  Sex: Female

DRUGS (2)
  1. CYMBALTA [Suspect]
     Indication: BIPOLAR DISORDER
     Dosage: 60 MG ONCE DAILY PO
     Route: 048
  2. CYMBALTA [Suspect]
     Dosage: 30 MG ONCE NIGHTLY PO
     Route: 048

REACTIONS (2)
  - TOOTH DISORDER [None]
  - BRUXISM [None]
